FAERS Safety Report 5177435-5 (Version None)
Quarter: 2006Q4

REPORT INFORMATION
  Report Type: 
  Country: None (occurrence: None)
  Receive Date: 20061206
  Receipt Date: 20061124
  Transmission Date: 20070319
  Serious: Yes (Death, Hospitalization)
  Sender: FDA-Public Use
  Company Number: 2005079962

PATIENT
  Age: 62 Year
  Sex: Male
  Weight: 85 kg

DRUGS (3)
  1. SUTENT [Suspect]
     Indication: GASTROINTESTINAL STROMAL TUMOUR
     Dosage: 50 MG (50 MG,1 IN 1 D), ORAL
     Route: 048
     Dates: start: 20050505, end: 20050518
  2. NOVALGIN            (METAMIZOLE SODIUM) [Concomitant]
  3. METOCLOPRAMIDE [Concomitant]

REACTIONS (5)
  - ABASIA [None]
  - ASTHENIA [None]
  - HAEMODIALYSIS [None]
  - MEMORY IMPAIRMENT [None]
  - RENAL IMPAIRMENT [None]
